FAERS Safety Report 14068081 (Version 1)
Quarter: 2017Q4

REPORT INFORMATION
  Report Type: Spontaneous
  Country: US (occurrence: US)
  Receive Date: 20171009
  Receipt Date: 20171009
  Transmission Date: 20180321
  Serious: No
  Sender: FDA-Public Use
  Company Number: None

PATIENT
  Age: 70 Year
  Sex: Male
  Weight: 72 kg

DRUGS (5)
  1. SUPER BETA PROSTATE [Concomitant]
     Active Substance: DIETARY SUPPLEMENT
  2. ARTHRO-7 [Concomitant]
  3. BLACK CUMIN SEED OIL [Concomitant]
  4. CHANTIX [Suspect]
     Active Substance: VARENICLINE TARTRATE
     Indication: SMOKING CESSATION THERAPY
     Dosage: ?          QUANTITY:56 TABLET(S);?
     Route: 048
  5. OMEPRAZOLE DR [Concomitant]
     Active Substance: OMEPRAZOLE

REACTIONS (6)
  - Nightmare [None]
  - Aggression [None]
  - Mood swings [None]
  - Anger [None]
  - Hallucination [None]
  - Insomnia [None]
